FAERS Safety Report 6151225-9 (Version None)
Quarter: 2009Q2

REPORT INFORMATION
  Report Type: 
  Country: None (occurrence: None)
  Receive Date: 20090410
  Receipt Date: 20090408
  Transmission Date: 20091009
  Serious: Yes (Life-Threatening, Hospitalization)
  Sender: FDA-Public Use
  Company Number: PL-BRISTOL-MYERS SQUIBB COMPANY-14475651

PATIENT
  Age: 42 Year
  Sex: Female
  Weight: 104 kg

DRUGS (1)
  1. ABILIFY [Suspect]
     Indication: SCHIZOPHRENIA
     Dosage: DF= TABLETS. 15MG/DAILY PO  FROM OCT OR DEC 2008-18JAN2009.
     Route: 048
     Dates: start: 20080101, end: 20090118

REACTIONS (3)
  - INTENTIONAL OVERDOSE [None]
  - PSYCHOTIC DISORDER [None]
  - SUICIDE ATTEMPT [None]
